FAERS Safety Report 7016784-2 (Version None)
Quarter: 2010Q3

REPORT INFORMATION
  Report Type: 
  Country: None (occurrence: None)
  Receive Date: 20100909
  Receipt Date: 20100617
  Transmission Date: 20110219
  Serious: No
  Sender: FDA-Public Use
  Company Number: 2010SP034320

PATIENT
  Sex: Female

DRUGS (3)
  1. SAPHRIS [Suspect]
     Indication: BIPOLAR DISORDER
     Dosage: 5 MG;BID;SL
     Route: 060
  2. SEROQUEL (CON.) [Concomitant]
  3. LEXAPRO (CON.) [Concomitant]

REACTIONS (1)
  - HEPATIC ENZYME INCREASED [None]
